FAERS Safety Report 11870993 (Version 2)
Quarter: 2016Q1

REPORT INFORMATION
  Report Type: Spontaneous
  Country: US (occurrence: US)
  Receive Date: 20151228
  Receipt Date: 20160104
  Transmission Date: 20160526
  Serious: No
  Sender: FDA-Public Use
  Company Number: US-BAYER-2015-492492

PATIENT
  Sex: Female

DRUGS (1)
  1. ALEVE [Suspect]
     Active Substance: NAPROXEN SODIUM
     Dosage: UNK

REACTIONS (7)
  - Fear [None]
  - Malaise [None]
  - Feeling abnormal [None]
  - Feeling jittery [None]
  - Adverse reaction [None]
  - Drug ineffective [None]
  - Insomnia [None]
